FAERS Safety Report 4730807-2 (Version None)
Quarter: 2005Q3

REPORT INFORMATION
  Report Type: 
  Country: None (occurrence: None)
  Receive Date: 20050719
  Receipt Date: 20041116
  Transmission Date: 20060218
  Serious: Yes (Other)
  Sender: FDA-Public Use
  Company Number: 207870

PATIENT
  Sex: Female
  Weight: 61.2356 kg

DRUGS (4)
  1. AVONEX [Suspect]
     Indication: MULTIPLE SCLEROSIS
     Dosage: 30 UG;QW;IM
     Route: 030
     Dates: start: 19980101, end: 20030101
  2. AVONEX [Suspect]
     Indication: MULTIPLE SCLEROSIS
     Dosage: 30 UG;QW;IM
     Route: 030
     Dates: start: 20030101, end: 20041101
  3. AMANTADINE [Concomitant]
  4. MOTRIN [Concomitant]

REACTIONS (6)
  - ABORTION SPONTANEOUS [None]
  - INSOMNIA [None]
  - NASOPHARYNGITIS [None]
  - NUCLEAR MAGNETIC RESONANCE IMAGING ABNORMAL [None]
  - PRURITUS [None]
  - RASH PRURITIC [None]
